FAERS Safety Report 11211369 (Version 1)
Quarter: 2015Q2

REPORT INFORMATION
  Report Type: Spontaneous
  Country: TR (occurrence: None)
  Receive Date: 20150619
  Receipt Date: 20150619
  Transmission Date: 20150821
  Serious: Yes (Other)
  Sender: FDA-Public Use
  Company Number: PD-NAP-TR-2015-012

PATIENT
  Sex: Female

DRUGS (3)
  1. IBUPROFEN (UNKNOWN) (IBUPROFEN) UNK, UNKUNK [Suspect]
     Active Substance: IBUPROFEN
     Indication: DRUG PROVOCATION TEST
  2. LONG-ACTING BRONCHODILATOR AND BUDESONIDE (BUDESONIDE) [Concomitant]
  3. NAPROXEN (UNKNOWN) [Suspect]
     Active Substance: NAPROXEN
     Indication: DRUG PROVOCATION TEST

REACTIONS (4)
  - Nasal congestion [None]
  - Urticaria [None]
  - Rhinorrhoea [None]
  - Angioedema [None]
